FAERS Safety Report 5391813-0 (Version None)
Quarter: 2007Q3

REPORT INFORMATION
  Report Type: 
  Country: None (occurrence: None)
  Receive Date: 20070718
  Receipt Date: 20070702
  Transmission Date: 20080115
  Serious: Yes (Congenital Anomaly)
  Sender: FDA-Public Use
  Company Number: SPV1-2007-03549

PATIENT
  Sex: Female

DRUGS (1)
  1. PENTASA [Suspect]
     Indication: CROHN'S DISEASE
     Dosage: ORAL
     Route: 048

REACTIONS (2)
  - CONGENITAL HAND MALFORMATION [None]
  - LIMB REDUCTION DEFECT [None]
